FAERS Safety Report 8572622-8 (Version None)
Quarter: 2012Q3

REPORT INFORMATION
  Report Type: 
  Country: None (occurrence: None)
  Receive Date: 20120806
  Receipt Date: 20120730
  Transmission Date: 20120928
  Serious: Yes (Other)
  Sender: FDA-Public Use
  Company Number: US-B.I. PHARMACEUTICALS,INC./RIDGEFIELD-2012-BP-13605BP

PATIENT
  Sex: Male
  Weight: 81.64 kg

DRUGS (8)
  1. SINGULAIR [Concomitant]
     Indication: HYPERSENSITIVITY
     Dosage: 40 MG
     Route: 048
  2. DIGOXIN [Concomitant]
     Dosage: 0.25 MCG
     Route: 048
     Dates: start: 19950101
  3. ASPIRIN [Concomitant]
     Indication: ATRIAL FIBRILLATION
     Dosage: 325 MG
     Route: 048
     Dates: start: 20070101
  4. DIGOXIN [Concomitant]
     Dosage: 0.125 MCG
     Route: 048
     Dates: start: 19950101
  5. ZOCOR [Concomitant]
     Indication: HYPERLIPIDAEMIA
     Dosage: 40 MG
     Route: 048
     Dates: start: 20020101
  6. TRADJENTA [Suspect]
     Indication: TYPE 2 DIABETES MELLITUS
     Dosage: 5 MG
     Route: 048
     Dates: end: 20120707
  7. SINGULAIR [Concomitant]
     Indication: ASTHMA
  8. VERAPAMIL [Concomitant]
     Indication: ARRHYTHMIA
     Dosage: 320 MG
     Route: 048
     Dates: start: 19950101

REACTIONS (5)
  - BACK PAIN [None]
  - BLOOD GLUCOSE INCREASED [None]
  - CONSTIPATION [None]
  - MUSCULOSKELETAL CHEST PAIN [None]
  - FATIGUE [None]
